FAERS Safety Report 6196920-0 (Version None)
Quarter: 2009Q2

REPORT INFORMATION
  Report Type: 
  Country: None (occurrence: None)
  Receive Date: 20090518
  Receipt Date: 20090507
  Transmission Date: 20091009
  Serious: Yes (Death)
  Sender: FDA-Public Use
  Company Number: 2008-01453

PATIENT
  Age: 69 Year
  Sex: Female
  Weight: 63 kg

DRUGS (13)
  1. VELCADE [Suspect]
     Indication: MULTIPLE MYELOMA
     Dosage: 1.3 MG, INTRAVENOUS, 1.5 MG, INTRAVENOUS
     Route: 042
     Dates: start: 20070521, end: 20070531
  2. VELCADE [Suspect]
     Indication: MULTIPLE MYELOMA
     Dosage: 1.3 MG, INTRAVENOUS, 1.5 MG, INTRAVENOUS
     Route: 042
     Dates: start: 20070615, end: 20071004
  3. DEXAMETHASONE 4MG TAB [Concomitant]
  4. CARVEDILOL [Concomitant]
  5. ACARDI (PIMOBENDAN) [Concomitant]
  6. ISOSORBIDE MONONITRATE [Concomitant]
  7. ALLOPURINOL [Concomitant]
  8. CANDESARTAN CILEXETIL [Concomitant]
  9. NORVASC [Concomitant]
  10. SELBEX (TEPRENONE) [Concomitant]
  11. FAMOTIDINE [Concomitant]
  12. AMARYL [Concomitant]
  13. PHOSPHATIDYL CHOLINE (PHOSPHATIDYL CHOLINE) [Concomitant]

REACTIONS (10)
  - ACUTE MYOCARDIAL INFARCTION [None]
  - BLOOD GLUCOSE INCREASED [None]
  - CEREBRAL INFARCTION [None]
  - CHOLECYSTITIS [None]
  - HERPES ZOSTER [None]
  - INFECTION [None]
  - MALIGNANT NEOPLASM PROGRESSION [None]
  - MULTIPLE MYELOMA [None]
  - PULMONARY CONGESTION [None]
  - RENAL FAILURE [None]
